FAERS Safety Report 8401456-X (Version None)
Quarter: 2012Q2

REPORT INFORMATION
  Report Type: 
  Country: None (occurrence: None)
  Receive Date: 20120530
  Receipt Date: 20120530
  Transmission Date: 20120825
  Serious: Yes (Other)
  Sender: FDA-Public Use
  Company Number: None

PATIENT
  Age: 44 Year
  Sex: Female
  Weight: 103.4201 kg

DRUGS (1)
  1. TOPIRAMATE [Suspect]
     Indication: CONVULSION
     Dosage: 75 MG DAY PO
     Route: 048
     Dates: start: 20120416, end: 20120529

REACTIONS (3)
  - PHOTOPHOBIA [None]
  - HEADACHE [None]
  - VISUAL IMPAIRMENT [None]
